FAERS Safety Report 4589948-5 (Version None)
Quarter: 2005Q1

REPORT INFORMATION
  Report Type: 
  Country: None (occurrence: None)
  Receive Date: 20050125
  Receipt Date: 20041001
  Transmission Date: 20050727
  Serious: No
  Sender: FDA-Public Use
  Company Number: USA040671069

PATIENT
  Age: 72 Year
  Sex: Female
  Weight: 57 kg

DRUGS (5)
  1. FORTEO [Suspect]
     Indication: OSTEOPOROSIS
     Dosage: 20 UG/1 DAY
     Dates: start: 20040623
  2. HYDROCODONE [Concomitant]
  3. SYNTHROID [Concomitant]
  4. CLONAZEPAM [Concomitant]
  5. TRAZADONE (TRAZODONE) [Concomitant]

REACTIONS (10)
  - DIARRHOEA [None]
  - DISCOMFORT [None]
  - INJECTION SITE ERYTHEMA [None]
  - INJECTION SITE HAEMORRHAGE [None]
  - INSOMNIA [None]
  - LIMB DISCOMFORT [None]
  - MUSCLE SPASMS [None]
  - PAIN IN EXTREMITY [None]
  - SPINAL X-RAY [None]
  - WALKING AID USER [None]
